FAERS Safety Report 5147869-3 (Version None)
Quarter: 2006Q4

REPORT INFORMATION
  Report Type: 
  Country: None (occurrence: None)
  Receive Date: 20061106
  Receipt Date: 20061025
  Transmission Date: 20070319
  Serious: Yes (Hospitalization)
  Sender: FDA-Public Use
  Company Number: TPA2006A01497

PATIENT
  Age: 80 Year
  Sex: Female
  Weight: 63.2 kg

DRUGS (15)
  1. PIOGLITAZONE HCL [Suspect]
     Indication: GLUCOSE TOLERANCE IMPAIRED
     Dosage: UNK., UNKNOWN, PER ORAL
     Route: 048
     Dates: start: 20050622
  2. PROTONIX (PANTOPRAZOLE)(40 MILLIGRAM) [Concomitant]
  3. DETROL LA (TOLTERODINE L-TARTRATE) (4 MILLIGRAM) [Concomitant]
  4. BUMETANIDE (BUMETANIDE) (2 MILLIGRAM) [Concomitant]
  5. LEVOTHYROXINE (LEVOTHYROXINE) (100 MICROGRAM(S)/SQ. METER) [Concomitant]
  6. CALCIUM (CALCIUM) (600 MILLIGRAM) [Concomitant]
  7. TYLENOL (PARACETAMOL) (500 MILLIGRAM) [Concomitant]
  8. VITAMIN E (TOCOPHEROL) (400 IU (INTERNATIONAL UNIT)) [Concomitant]
  9. ECOTRIN (ACETYLSALICYLIC ACID) (81 MILLIGRAM) [Concomitant]
  10. MULTIVITAMIN [Concomitant]
  11. CRESTOR (ROSUVASTATIN CALCIUM)(20 MILLIGRAM) [Concomitant]
  12. CRESTOR (ROSUVASTATIN CALCIUM) (20 MILLIGRAM) [Concomitant]
  13. TRAMADOL HCL (TRAMADOL HYDROCHLORIDE) (50 MILLIGRAM) [Concomitant]
  14. ATENOLOL (ATHENOLOL) (25 MILLIGRAM) [Concomitant]
  15. OXYBUTYNIN (OXYBUTYNIN) (5 MILLIGRAM) [Concomitant]

REACTIONS (1)
  - KNEE ARTHROPLASTY [None]
